FAERS Safety Report 14053676 (Version 2)
Quarter: 2017Q4

REPORT INFORMATION
  Report Type: Spontaneous
  Country: AR (occurrence: AR)
  Receive Date: 20171006
  Receipt Date: 20171222
  Transmission Date: 20180321
  Serious: Yes (Other)
  Sender: FDA-Public Use
  Company Number: AR-BAYER-2017-188015

PATIENT
  Age: 39 Year
  Sex: Female

DRUGS (4)
  1. MIRENA [Suspect]
     Active Substance: LEVONORGESTREL
     Dosage: 20 MCG/24HR, CONT
     Route: 015
     Dates: start: 201204, end: 2017
  2. MIRENA [Suspect]
     Active Substance: LEVONORGESTREL
  3. MIRENA [Suspect]
     Active Substance: LEVONORGESTREL
     Dosage: 20 MCG/24HR, CONT
     Route: 015
     Dates: start: 201705
  4. FEXOFENADINE [Concomitant]
     Active Substance: FEXOFENADINE\FEXOFENADINE HYDROCHLORIDE
     Indication: OROPHARYNGEAL DISCOMFORT
     Dosage: 120 MG, UNK
     Dates: start: 201708

REACTIONS (8)
  - Respiration abnormal [Not Recovered/Not Resolved]
  - Laryngeal pain [Not Recovered/Not Resolved]
  - Tracheitis [Not Recovered/Not Resolved]
  - Oropharyngeal discomfort [Recovered/Resolved]
  - Oropharyngeal discomfort [Recovered/Resolved]
  - Hiatus hernia [Not Recovered/Not Resolved]
  - Abdominal discomfort [Not Recovered/Not Resolved]
  - Laryngeal oedema [Not Recovered/Not Resolved]

NARRATIVE: CASE EVENT DATE: 2013
